FAERS Safety Report 4914217-0 (Version None)
Quarter: 2006Q1

REPORT INFORMATION
  Report Type: 
  Country: None (occurrence: None)
  Receive Date: 20060213
  Receipt Date: 20060203
  Transmission Date: 20060701
  Serious: Yes (Other)
  Sender: FDA-Public Use
  Company Number: 200610436GDS

PATIENT
  Age: 55 Year
  Sex: Female

DRUGS (4)
  1. CIPROFLOXACIN HCL [Suspect]
     Dosage: 500 MG, TOTAL DAILY, ORAL
     Route: 048
  2. NOVOLIN 70/30 [Suspect]
     Dosage: SUBCUTANEOUS
     Route: 058
  3. HYDROCHLOROTHIAZIDE [Concomitant]
  4. METFORMIN [Concomitant]

REACTIONS (5)
  - CHEST DISCOMFORT [None]
  - DIZZINESS [None]
  - DYSPNOEA [None]
  - HYPOGLYCAEMIA [None]
  - MALAISE [None]
